FAERS Safety Report 5167181-6 (Version None)
Quarter: 2006Q4

REPORT INFORMATION
  Report Type: 
  Country: None (occurrence: None)
  Receive Date: 20061130
  Receipt Date: 20061120
  Transmission Date: 20070319
  Serious: Yes (Death)
  Sender: FDA-Public Use
  Company Number: 14932

PATIENT
  Age: 77 Year
  Sex: Male
  Weight: 54.8 kg

DRUGS (4)
  1. PACLITAXEL [Suspect]
     Indication: GASTRIC CANCER
     Dosage: 64 MG/M2 PER _CYCLE
     Dates: start: 20040801
  2. DEXAMETHASONE [Concomitant]
  3. RANITIDINE [Concomitant]
  4. DIPHENHYDRAMINE HCL [Concomitant]

REACTIONS (9)
  - BLOOD GLUCOSE FLUCTUATION [None]
  - BLOOD LACTATE DEHYDROGENASE INCREASED [None]
  - GENERAL PHYSICAL HEALTH DETERIORATION [None]
  - INTERSTITIAL LUNG DISEASE [None]
  - MULTI-ORGAN FAILURE [None]
  - PNEUMONIA ASPIRATION [None]
  - PSEUDOMONAS INFECTION [None]
  - RENAL FAILURE [None]
  - SPUTUM PURULENT [None]
